FAERS Safety Report 13165973 (Version 1)
Quarter: 2017Q1

REPORT INFORMATION
  Report Type: Spontaneous
  Country: US (occurrence: US)
  Receive Date: 20170131
  Receipt Date: 20170131
  Transmission Date: 20170428
  Serious: No
  Sender: FDA-Public Use
  Company Number: US-HORIZON-ACT-0021-2017

PATIENT
  Age: 58 Year
  Sex: Female

DRUGS (25)
  1. KLOR [Concomitant]
  2. SINGULAIR [Concomitant]
     Active Substance: MONTELUKAST SODIUM
  3. THEOPHYLLINE [Concomitant]
     Active Substance: THEOPHYLLINE ANHYDROUS
  4. VALTREX [Concomitant]
     Active Substance: VALACYCLOVIR HYDROCHLORIDE
  5. ACYCLOVIR. [Concomitant]
     Active Substance: ACYCLOVIR
  6. GARLIC. [Concomitant]
     Active Substance: GARLIC
  7. VITAMIN D [Concomitant]
     Active Substance: CHOLECALCIFEROL
  8. ALBUTEROL. [Concomitant]
     Active Substance: ALBUTEROL
  9. CARDIZEM [Concomitant]
     Active Substance: DILTIAZEM HYDROCHLORIDE
  10. FUROSEMIDE. [Concomitant]
     Active Substance: FUROSEMIDE
  11. SEREVENT DISKUS [Concomitant]
     Active Substance: SALMETEROL XINAFOATE
  12. SPIRIVA [Concomitant]
     Active Substance: TIOTROPIUM BROMIDE MONOHYDRATE
  13. ALDACTONE [Concomitant]
     Active Substance: SPIRONOLACTONE
  14. PREDNISONE. [Concomitant]
     Active Substance: PREDNISONE
  15. IRON [Concomitant]
     Active Substance: IRON
  16. BROVANA [Concomitant]
     Active Substance: ARFORMOTEROL TARTRATE
  17. CLARITIN [Concomitant]
     Active Substance: LORATADINE
  18. CLONIDINE. [Concomitant]
     Active Substance: CLONIDINE
  19. KLONOPIN [Concomitant]
     Active Substance: CLONAZEPAM
  20. MIRALAX [Concomitant]
     Active Substance: POLYETHYLENE GLYCOL 3350
  21. NORCO [Concomitant]
     Active Substance: ACETAMINOPHEN\HYDROCODONE BITARTRATE
  22. SEROQUEL [Concomitant]
     Active Substance: QUETIAPINE FUMARATE
  23. ZANTAC [Concomitant]
     Active Substance: RANITIDINE HYDROCHLORIDE
  24. VITAMIN C [Concomitant]
     Active Substance: ASCORBIC ACID
  25. ACTIMMUNE [Suspect]
     Active Substance: INTERFERON GAMMA-1B
     Indication: CHRONIC GRANULOMATOUS DISEASE

REACTIONS (3)
  - Chills [Recovered/Resolved]
  - Application site bruise [Unknown]
  - Pain [Recovered/Resolved]

NARRATIVE: CASE EVENT DATE: 20170119
